FAERS Safety Report 5939504-9 (Version None)
Quarter: 2008Q4

REPORT INFORMATION
  Report Type: 
  Country: None (occurrence: None)
  Receive Date: 20081030
  Receipt Date: 20081020
  Transmission Date: 20090506
  Serious: Yes (Hospitalization, Other)
  Sender: FDA-Public Use
  Company Number: 20085606

PATIENT
  Sex: Female

DRUGS (1)
  1. LIORESAL [Suspect]
     Indication: MUSCLE SPASTICITY
     Dosage: 3-400 MCG,DAILY INTRATHECAL
     Route: 037

REACTIONS (5)
  - COGNITIVE DISORDER [None]
  - DEVICE FAILURE [None]
  - HYPERTONIA [None]
  - HYPOTONIA [None]
  - MENTAL STATUS CHANGES [None]
